FAERS Safety Report 4346284-X (Version None)
Quarter: 2004Q1

REPORT INFORMATION
  Report Type: 
  Country: None (occurrence: None)
  Receive Date: 20040325
  Receipt Date: 20040114
  Transmission Date: 20041129
  Serious: No
  Sender: FDA-Public Use
  Company Number: USA040156593

PATIENT
  Age: 71 Year
  Sex: Female

DRUGS (6)
  1. FORTEO [Suspect]
     Indication: OSTEOPOROSIS
     Dates: start: 20030902
  2. LEVOYXL (LEVOTHYROXINE SODIUM) [Concomitant]
  3. GENOTROPIN [Concomitant]
  4. MULTIVITAMIN [Concomitant]
  5. CALCIUM [Concomitant]
  6. ACIPHEX [Concomitant]

REACTIONS (5)
  - BACK DISORDER [None]
  - BACK PAIN [None]
  - KYPHOSIS [None]
  - PAIN IN EXTREMITY [None]
  - SCOLIOSIS [None]
